FAERS Safety Report 7070106-X (Version None)
Quarter: 2010Q4

REPORT INFORMATION
  Report Type: 
  Country: None (occurrence: None)
  Receive Date: 20101028
  Receipt Date: 20100902
  Transmission Date: 20110411
  Serious: No
  Sender: FDA-Public Use
  Company Number: US-WYE-H17348410

PATIENT
  Age: 35 Year
  Sex: Female
  Weight: 54.93 kg

DRUGS (5)
  1. ADVIL [Suspect]
     Indication: PAIN IN JAW
     Dosage: 1 LIQUI-GEL ONCE
     Route: 048
     Dates: start: 20100901, end: 20100901
  2. ADVIL [Suspect]
     Dosage: UNKNOWN
     Route: 048
     Dates: start: 20020101
  3. MAGNESIUM HYDROXIDE [Concomitant]
  4. METAMUCIL-2 [Concomitant]
  5. MACROGOL [Concomitant]

REACTIONS (3)
  - RASH PAPULAR [None]
  - RASH PRURITIC [None]
  - URTICARIA [None]
